FAERS Safety Report 5254430-9 (Version None)
Quarter: 2007Q1

REPORT INFORMATION
  Report Type: 
  Country: None (occurrence: None)
  Receive Date: 20070302
  Receipt Date: 20070206
  Transmission Date: 20070707
  Serious: Yes (Other)
  Sender: FDA-Public Use
  Company Number: US-SHR-US-2007-004653

PATIENT
  Age: 24 Year
  Sex: Female
  Weight: 52.2 kg

DRUGS (1)
  1. YASMIN [Suspect]
     Dosage: 1 TAB(S), 1X/DAY
     Route: 048
     Dates: start: 20041101

REACTIONS (3)
  - DARK CIRCLES UNDER EYES [None]
  - NIGHT BLINDNESS [None]
  - RASH [None]
